FAERS Safety Report 6019527-4 (Version None)
Quarter: 2008Q4

REPORT INFORMATION
  Report Type: 
  Country: None (occurrence: None)
  Receive Date: 20081224
  Receipt Date: 20081215
  Transmission Date: 20090506
  Serious: Yes (Death, Other)
  Sender: FDA-Public Use
  Company Number: US-ELI_LILLY_AND_COMPANY-US200812003746

PATIENT
  Age: 23 Year
  Sex: Male

DRUGS (2)
  1. CYMBALTA [Suspect]
     Indication: PAIN
     Dosage: 60 MG, DAILY (1/D)
  2. ULTRAM [Concomitant]

REACTIONS (2)
  - DEATH [None]
  - SEROTONIN SYNDROME [None]
